FAERS Safety Report 17594989 (Version 3)
Quarter: 2020Q2

REPORT INFORMATION
  Report Type: Report from Study
  Country: US (occurrence: US)
  Receive Date: 20200328
  Receipt Date: 20200603
  Transmission Date: 20200713
  Serious: No
  Sender: FDA-Public Use
  Company Number: NVSC2020US085940

PATIENT
  Sex: Female

DRUGS (1)
  1. COSENTYX [Suspect]
     Active Substance: SECUKINUMAB
     Indication: PSORIATIC ARTHROPATHY
     Dosage: 300 MG, Q4W
     Route: 058

REACTIONS (7)
  - Injection site bruising [Unknown]
  - Drug ineffective [Unknown]
  - Injection site discomfort [Unknown]
  - Pruritus [Unknown]
  - Incorrect product administration duration [Unknown]
  - Back pain [Unknown]
  - Injection site pain [Unknown]
